FAERS Safety Report 6441333-7 (Version None)
Quarter: 2009Q4

REPORT INFORMATION
  Report Type: 
  Country: None (occurrence: None)
  Receive Date: 20091113
  Receipt Date: 20091113
  Transmission Date: 20100525
  Serious: Yes (Life-Threatening, Hospitalization, Disabling)
  Sender: FDA-Public Use
  Company Number: None

PATIENT
  Age: 71 Year
  Sex: Female
  Weight: 70 kg

DRUGS (2)
  1. VANCOMYCIN [Suspect]
     Dosage: COUPLE OF DAYS
  2. DAPTOMYCIN [Suspect]
     Dosage: COUPLE OF DAYS

REACTIONS (1)
  - TOXIC EPIDERMAL NECROLYSIS [None]
